FAERS Safety Report 16892216 (Version 1)
Quarter: 2019Q4

REPORT INFORMATION
  Report Type: Spontaneous
  Country: JP (occurrence: JP)
  Receive Date: 20191007
  Receipt Date: 20191007
  Transmission Date: 20200122
  Serious: Yes (Death, Life-Threatening, Hospitalization, Other)
  Sender: FDA-Public Use
  Company Number: JP-BAUSCH-BL-2019-055753

PATIENT
  Age: 50 Year
  Sex: Male

DRUGS (6)
  1. NORADRENALINE [Concomitant]
     Active Substance: NOREPINEPHRINE
     Indication: SEPTIC SHOCK
  2. RASBURICASE [Concomitant]
     Active Substance: RASBURICASE
     Indication: ACUTE LYMPHOCYTIC LEUKAEMIA
  3. PREDNISOLONE. [Suspect]
     Active Substance: PREDNISOLONE
     Indication: ACUTE LYMPHOCYTIC LEUKAEMIA
     Route: 065
  4. VASOPRESSIN. [Concomitant]
     Active Substance: VASOPRESSIN
     Indication: SEPTIC SHOCK
  5. MEROPENEM. [Concomitant]
     Active Substance: MEROPENEM
     Indication: SEPTIC SHOCK
  6. FILGRASTIM [Concomitant]
     Active Substance: FILGRASTIM
     Indication: SEPTIC SHOCK

REACTIONS (10)
  - Tumour lysis syndrome [Fatal]
  - Hepatic failure [Fatal]
  - Multiple organ dysfunction syndrome [Fatal]
  - Myocardial necrosis [Fatal]
  - Acute kidney injury [Fatal]
  - Acute left ventricular failure [Fatal]
  - Respiratory failure [Fatal]
  - Myocardial calcification [Fatal]
  - Circulatory collapse [Fatal]
  - Hyperphosphataemia [Fatal]
